FAERS Safety Report 12906177 (Version 1)
Quarter: 2016Q4

REPORT INFORMATION
  Report Type: Spontaneous
  Country: US (occurrence: US)
  Receive Date: 20161102
  Receipt Date: 20161102
  Transmission Date: 20170207
  Serious: No
  Sender: FDA-Public Use
  Company Number: None

PATIENT
  Age: 68 Year
  Sex: Female
  Weight: 44.49 kg

DRUGS (9)
  1. ONABOTULINUMTOXIN A WAS USED FOR HEADACHS [Suspect]
     Active Substance: ONABOTULINUMTOXINA
     Indication: HEADACHE
     Dates: start: 20160923
  2. ASPIRIN. [Concomitant]
     Active Substance: ASPIRIN
  3. VITAMIN D3 [Concomitant]
     Active Substance: CHOLECALCIFEROL
  4. TRAMADOL HCL [Concomitant]
     Active Substance: TRAMADOL HYDROCHLORIDE
  5. ONABOTULINUMTOXIN A WAS USED FOR HEADACHS [Suspect]
     Active Substance: ONABOTULINUMTOXINA
     Indication: PAIN
     Dates: start: 20160923
  6. ALPRAZOLAM. [Concomitant]
     Active Substance: ALPRAZOLAM
  7. FAMOTIDINE. [Concomitant]
     Active Substance: FAMOTIDINE
  8. CALCIUM CITRATE [Concomitant]
     Active Substance: CALCIUM CITRATE
  9. PRAVASTATIN SODIUM. [Concomitant]
     Active Substance: PRAVASTATIN SODIUM

REACTIONS (7)
  - Asthenia [None]
  - Headache [None]
  - Feeling abnormal [None]
  - Fatigue [None]
  - Vision blurred [None]
  - Neck pain [None]
  - Eye disorder [None]

NARRATIVE: CASE EVENT DATE: 20160924
